FAERS Safety Report 5155150-1 (Version None)
Quarter: 2006Q4

REPORT INFORMATION
  Report Type: 
  Country: None (occurrence: None)
  Receive Date: 20061121
  Receipt Date: 20061102
  Transmission Date: 20070319
  Serious: Yes (Hospitalization)
  Sender: FDA-Public Use
  Company Number: 2006UW21257

PATIENT
  Age: 24924 Day
  Sex: Male

DRUGS (8)
  1. ENTOCORT [Suspect]
     Indication: MALIGNANT MELANOMA
     Route: 048
     Dates: start: 20060619, end: 20061003
  2. IPILIMUMAB [Suspect]
     Indication: MALIGNANT MELANOMA
     Dosage: CYCLICAL
     Route: 042
     Dates: start: 20060619, end: 20061003
  3. PLACEBO [Suspect]
     Indication: MALIGNANT MELANOMA
     Route: 048
     Dates: start: 20060619, end: 20060823
  4. BENADRYL [Concomitant]
     Dates: start: 20060724
  5. SYNTHROID [Concomitant]
     Dates: start: 20060810
  6. ALDACTONE [Concomitant]
     Dates: start: 20061017
  7. VICODIN [Concomitant]
     Dates: start: 20061006
  8. ASACOL [Concomitant]
     Dates: start: 20061017

REACTIONS (9)
  - COLITIS [None]
  - DIARRHOEA [None]
  - GASTROINTESTINAL HAEMORRHAGE [None]
  - HAEMATOCRIT DECREASED [None]
  - HAEMOGLOBIN DECREASED [None]
  - HAEMORRHOIDS [None]
  - LARGE INTESTINAL ULCER [None]
  - MUCOSAL INFLAMMATION [None]
  - RECTAL ABSCESS [None]
